FAERS Safety Report 5165460-X (Version None)
Quarter: 2006Q4

REPORT INFORMATION
  Report Type: 
  Country: None (occurrence: None)
  Receive Date: 20061206
  Receipt Date: 20061018
  Transmission Date: 20070319
  Serious: Yes (Hospitalization)
  Sender: FDA-Public Use
  Company Number: 2006AP05024

PATIENT
  Age: 17855 Day
  Sex: Female
  Weight: 63 kg

DRUGS (1)
  1. XYLOCAINE W/ EPINEPHRINE [Suspect]
     Indication: LOCAL ANAESTHESIA
     Route: 004
     Dates: start: 20060925, end: 20060925

REACTIONS (3)
  - DYSPNOEA [None]
  - NAUSEA [None]
  - PALPITATIONS [None]
